FAERS Safety Report 4611178-9 (Version None)
Quarter: 2005Q1

REPORT INFORMATION
  Report Type: 
  Country: None (occurrence: None)
  Receive Date: 20050315
  Receipt Date: 20050315
  Transmission Date: 20050727
  Serious: Yes (Hospitalization, Disabling)
  Sender: FDA-Public Use
  Company Number: None

PATIENT
  Age: 56 Year
  Sex: Female

DRUGS (2)
  1. CLOPIDOGREL [Suspect]
  2. ASPIRIN [Suspect]

REACTIONS (2)
  - CEREBELLAR HAEMORRHAGE [None]
  - HAEMORRHAGE [None]
